FAERS Safety Report 23320568 (Version 1)
Quarter: 2023Q4

REPORT INFORMATION
  Report Type: Spontaneous
  Country: US (occurrence: US)
  Receive Date: 20231220
  Receipt Date: 20231220
  Transmission Date: 20240110
  Serious: No
  Sender: FDA-Public Use
  Company Number: US-PFIZER INC-202300445359

PATIENT
  Sex: Female

DRUGS (2)
  1. ENCORAFENIB [Interacting]
     Active Substance: ENCORAFENIB
     Indication: Colorectal cancer
     Dosage: UNK
  2. PANITUMUMAB [Interacting]
     Active Substance: PANITUMUMAB
     Indication: Colorectal cancer metastatic
     Dosage: UNK

REACTIONS (4)
  - Fatigue [Unknown]
  - Drug interaction [Unknown]
  - Product use issue [Unknown]
  - Off label use [Unknown]
